FAERS Safety Report 17823601 (Version 1)
Quarter: 2020Q2

REPORT INFORMATION
  Report Type: Spontaneous
  Country: US (occurrence: US)
  Receive Date: 20200526
  Receipt Date: 20200526
  Transmission Date: 20200714
  Serious: No
  Sender: FDA-Public Use
  Company Number: US-PFIZER INC-2020203354

PATIENT
  Age: 82 Year
  Sex: Female
  Weight: 54.42 kg

DRUGS (1)
  1. TOVIAZ [Suspect]
     Active Substance: FESOTERODINE FUMARATE
     Indication: MICTURITION URGENCY
     Dosage: UNK, ALTERNATE DAY, ONCE EVERY OTHER DAY

REACTIONS (3)
  - Body height decreased [Unknown]
  - Intentional product misuse [Recovered/Resolved]
  - Movement disorder [Unknown]

NARRATIVE: CASE EVENT DATE: 202005
